FAERS Safety Report 13274905 (Version 1)
Quarter: 2017Q1

REPORT INFORMATION
  Report Type: Spontaneous
  Country: ZA (occurrence: ZA)
  Receive Date: 20170227
  Receipt Date: 20170227
  Transmission Date: 20170428
  Serious: Yes (Other)
  Sender: FDA-Public Use
  Company Number: ZA-BAUSCH-BL-2017-004804

PATIENT
  Sex: Male

DRUGS (2)
  1. ALDARA [Suspect]
     Active Substance: IMIQUIMOD
     Indication: BASAL CELL CARCINOMA
     Dosage: MONDAY TO FRIDAY
     Route: 061
     Dates: start: 20170109, end: 20170127
  2. ALDARA [Suspect]
     Active Substance: IMIQUIMOD
     Route: 061
     Dates: start: 20170206

REACTIONS (5)
  - Haemoglobin decreased [Recovering/Resolving]
  - Fatigue [Unknown]
  - Pancytopenia [Recovering/Resolving]
  - Mass [Unknown]
  - Drug dose omission [Unknown]

NARRATIVE: CASE EVENT DATE: 2017
